FAERS Safety Report 6524641-0 (Version None)
Quarter: 2010Q1

REPORT INFORMATION
  Report Type: 
  Country: None (occurrence: None)
  Receive Date: 20100104
  Receipt Date: 20091230
  Transmission Date: 20100710
  Serious: Yes (Death)
  Sender: FDA-Public Use
  Company Number: PHEH2009US18497

PATIENT
  Sex: Male

DRUGS (4)
  1. ZOMETA [Suspect]
     Dosage: UNK
  2. LORTAB [Concomitant]
  3. MORPHINE [Concomitant]
  4. ANTICOAGULANTS [Concomitant]

REACTIONS (1)
  - DEATH [None]
